FAERS Safety Report 6812182-2 (Version None)
Quarter: 2010Q3

REPORT INFORMATION
  Report Type: 
  Country: None (occurrence: None)
  Receive Date: 20100701
  Receipt Date: 20100625
  Transmission Date: 20110219
  Serious: Yes (Other)
  Sender: FDA-Public Use
  Company Number: AR-NOVOPROD-310799

PATIENT
  Age: 34 Year
  Sex: Female

DRUGS (2)
  1. NOVOSEVEN [Suspect]
     Indication: HAEMORRHAGE
     Dosage: 1.2 MG, UNK
  2. NOVOSEVEN [Suspect]
     Dosage: 4.8 MG, UNK

REACTIONS (1)
  - CARDIAC ARREST [None]
